FAERS Safety Report 8101794-4 (Version None)
Quarter: 2012Q1

REPORT INFORMATION
  Report Type: 
  Country: None (occurrence: None)
  Receive Date: 20120131
  Receipt Date: 20120125
  Transmission Date: 20120608
  Serious: Yes (Hospitalization)
  Sender: FDA-Public Use
  Company Number: PHHY2012VE007512

PATIENT
  Sex: Female

DRUGS (11)
  1. ZOLEDRONOC ACID [Suspect]
     Dosage: 5 MG, YEARLY
     Route: 042
     Dates: start: 20100201
  2. CALCIUM CARBONATE [Concomitant]
     Dosage: UNK UKN, UNK
     Dates: start: 20080101
  3. VITAMIN D [Concomitant]
     Dosage: UNK UKN, UNK
     Dates: start: 20080101
  4. PLAVIX [Concomitant]
     Indication: CAROTID ARTERY OCCLUSION
     Dosage: 75 MG, QD
     Route: 048
     Dates: start: 20080101
  5. CLONAZEPAM [Concomitant]
     Indication: SLEEP DISORDER
     Dosage: 2 MG, QD
     Route: 048
  6. ZOLEDRONOC ACID [Suspect]
     Dosage: 5 MG, YEARLY
     Route: 042
     Dates: start: 20110901
  7. ZOLEDRONOC ACID [Suspect]
     Dosage: 5 MG, YEARLY
     Route: 042
     Dates: start: 20090301
  8. GLUCOSAMINE [Concomitant]
     Dosage: 1.5 G, QD
     Route: 048
     Dates: start: 20080101
  9. ZOLEDRONOC ACID [Suspect]
     Indication: OSTEOPOROSIS
     Dosage: 5 MG, YEARLY
     Route: 042
     Dates: start: 20080307
  10. CHONDROITIN [Concomitant]
     Dosage: 1.2 G, QD
     Route: 048
     Dates: start: 20080101
  11. DIOVAN [Concomitant]
     Indication: HYPERTENSION
     Dosage: 80 MG, QD
     Route: 048
     Dates: start: 20070101

REACTIONS (5)
  - HIP FRACTURE [None]
  - BLOOD UREA INCREASED [None]
  - FEMUR FRACTURE [None]
  - CONCOMITANT DISEASE AGGRAVATED [None]
  - FALL [None]
